FAERS Safety Report 9725555 (Version 1)
Quarter: 2013Q4

REPORT INFORMATION
  Report Type: Report from Study
  Country: BR (occurrence: BR)
  Receive Date: 20131203
  Receipt Date: 20131203
  Transmission Date: 20140711
  Serious: Yes (Other)
  Sender: FDA-Public Use
  Company Number: PHHY2013BR139791

PATIENT
  Sex: Male
  Weight: 70 kg

DRUGS (5)
  1. TRILEPTAL [Suspect]
     Indication: EPILEPSY
     Dosage: 2 DF, BID (AT 7.30 AM AND AT 7.30 PM)
     Route: 048
     Dates: end: 20131126
  2. LIPITOR [Concomitant]
     Indication: ANGIOPLASTY
     Dosage: UNK UKN, UNK
  3. ASPIRINA PREVENT [Concomitant]
     Indication: ANGIOPATHY
     Dosage: UNK UKN, UNK
  4. PLAVIX [Concomitant]
     Indication: BLOOD DISORDER
     Dosage: UNK UKN, UNK
  5. LOSARTAN [Concomitant]
     Indication: BLOOD PRESSURE ABNORMAL
     Dosage: UNK UKN, UNK

REACTIONS (3)
  - Brain hypoxia [Not Recovered/Not Resolved]
  - Ischaemia [Not Recovered/Not Resolved]
  - Arterial occlusive disease [Not Recovered/Not Resolved]
